FAERS Safety Report 4659650-X (Version None)
Quarter: 2005Q2

REPORT INFORMATION
  Report Type: 
  Country: None (occurrence: None)
  Receive Date: 20050411
  Receipt Date: 20050119
  Transmission Date: 20051028
  Serious: No
  Sender: FDA-Public Use
  Company Number: A03200500178

PATIENT
  Age: 75 Year
  Sex: Male

DRUGS (3)
  1. UROXATRAL [Suspect]
     Indication: DYSURIA
     Dosage: 10 MG OD - ORAL
     Route: 048
     Dates: start: 20041201
  2. LOSARTAN/HYDROCHLOROTHIAXIDE [Concomitant]
  3. OMEPRAZOLE [Concomitant]

REACTIONS (1)
  - CHROMATURIA [None]
